FAERS Safety Report 5285138-1 (Version None)
Quarter: 2007Q2

REPORT INFORMATION
  Report Type: 
  Country: None (occurrence: None)
  Receive Date: 20070403
  Receipt Date: 20070322
  Transmission Date: 20071010
  Serious: Yes (Other)
  Sender: FDA-Public Use
  Company Number: US-PFIZER INC-2006097483

PATIENT
  Sex: Female

DRUGS (16)
  1. CHANTIX [Interacting]
     Indication: SMOKING CESSATION THERAPY
     Route: 048
  2. IBUPROFEN [Interacting]
     Indication: FIBROMYALGIA
     Route: 065
  3. IBUPROFEN [Interacting]
     Indication: SWELLING
  4. PREDNISONE [Suspect]
     Indication: VIRAL INFECTION
  5. PROVIGIL [Interacting]
     Indication: NARCOLEPSY
     Route: 065
  6. NORCO [Interacting]
     Indication: NECK PAIN
     Route: 065
  7. ALL OTHER THERAPEUTIC PRODUCTS [Concomitant]
     Route: 065
  8. CORRECTOL ^ALCON^ [Concomitant]
     Route: 065
  9. PROCARDIA XL [Concomitant]
  10. PROTONIX [Concomitant]
  11. LASIX [Concomitant]
  12. POTASSIUM ACETATE [Concomitant]
  13. MECLIZINE [Concomitant]
  14. DIOVAN [Concomitant]
  15. AMBIEN [Concomitant]
  16. ATENOLOL [Concomitant]

REACTIONS (9)
  - BLOOD PRESSURE INCREASED [None]
  - CONSTIPATION [None]
  - DRUG INTERACTION [None]
  - FLATULENCE [None]
  - FULL BLOOD COUNT ABNORMAL [None]
  - HEART RATE ABNORMAL [None]
  - NARCOLEPSY [None]
  - VIRAL INFECTION [None]
  - WHITE BLOOD CELL COUNT INCREASED [None]
